FAERS Safety Report 15574682 (Version 1)
Quarter: 2018Q4

REPORT INFORMATION
  Report Type: Spontaneous
  Country: US (occurrence: US)
  Receive Date: 20181026
  Receipt Date: 20181026
  Transmission Date: 20190205
  Serious: No
  Sender: FDA-Public Use
  Company Number: None

PATIENT
  Age: 66 Year
  Sex: Male

DRUGS (1)
  1. MAVYRET [Suspect]
     Active Substance: GLECAPREVIR\PIBRENTASVIR
     Route: 048
     Dates: start: 201808

REACTIONS (4)
  - Fatigue [None]
  - Dizziness [None]
  - Diarrhoea [None]
  - Hepatic cirrhosis [None]

NARRATIVE: CASE EVENT DATE: 20181025
